FAERS Safety Report 9817680 (Version 1)
Quarter: 2014Q1

REPORT INFORMATION
  Report Type: Spontaneous
  Country: US (occurrence: None)
  Receive Date: 20140110
  Receipt Date: 20140110
  Transmission Date: 20141002
  Serious: Yes (Life-Threatening, Hospitalization)
  Sender: FDA-Public Use
  Company Number: None

PATIENT
  Age: 5 None
  Sex: 0

DRUGS (1)
  1. REMICADE [Suspect]

REACTIONS (2)
  - Anaphylactic shock [None]
  - Uveitis [None]
